FAERS Safety Report 10419894 (Version 1)
Quarter: 2014Q2

REPORT INFORMATION
  Report Type: Spontaneous
  Country: US (occurrence: None)
  Receive Date: 20140627
  Receipt Date: 20140627
  Transmission Date: 20141212
  Serious: Yes (Hospitalization)
  Sender: FDA-Public Use
  Company Number: CABO-14004076

PATIENT
  Age: 50 Year
  Sex: Male

DRUGS (3)
  1. COMETRIQ (CABOZANTINIB) CAPSULE [Suspect]
     Indication: THYROID CANCER
     Route: 048
     Dates: start: 20140227, end: 20140304
  2. TRAMADOL (TRAMADOL) [Concomitant]
  3. LEVOTHYROXINE (LEVOTHYROXINE) [Concomitant]

REACTIONS (3)
  - Asthenia [None]
  - Gait disturbance [None]
  - Malaise [None]
